FAERS Safety Report 5793172-8 (Version None)
Quarter: 2008Q2

REPORT INFORMATION
  Report Type: 
  Country: None (occurrence: None)
  Receive Date: 20080626
  Receipt Date: 20080626
  Transmission Date: 20081010
  Serious: Yes (Hospitalization, Other)
  Sender: FDA-Public Use
  Company Number: None

PATIENT
  Age: 3 Year
  Sex: Male

DRUGS (2)
  1. TEGRETOL [Suspect]
     Indication: CONVULSION
     Dosage: DAILY
     Dates: start: 19940101, end: 19940201
  2. DILANTIN [Suspect]
     Indication: CONVULSION
     Dosage: DAILY
     Dates: start: 19940201, end: 19940301

REACTIONS (10)
  - ABASIA [None]
  - APHASIA [None]
  - BRAIN INJURY [None]
  - COGNITIVE DISORDER [None]
  - CONDITION AGGRAVATED [None]
  - CONVULSION [None]
  - COORDINATION ABNORMAL [None]
  - INCONTINENCE [None]
  - MEMORY IMPAIRMENT [None]
  - PSYCHOMOTOR HYPERACTIVITY [None]
